FAERS Safety Report 7822998-1 (Version None)
Quarter: 2011Q4

REPORT INFORMATION
  Report Type: 
  Country: None (occurrence: None)
  Receive Date: 20111018
  Receipt Date: 20110113
  Transmission Date: 20120403
  Serious: No
  Sender: FDA-Public Use
  Company Number: US-ASTRAZENECA-2010SE16995

PATIENT
  Age: 46 Year
  Sex: Female

DRUGS (3)
  1. SYMBICORT [Suspect]
     Dosage: 160 4.5 MCG
     Route: 055
  2. NEXIUM [Suspect]
     Route: 048
  3. XANAX [Suspect]
     Route: 065

REACTIONS (3)
  - AMNESIA [None]
  - MALAISE [None]
  - DRUG DOSE OMISSION [None]
